FAERS Safety Report 19727549 (Version 3)
Quarter: 2022Q2

REPORT INFORMATION
  Report Type: Report from Study
  Country: IL (occurrence: IL)
  Receive Date: 20210819
  Receipt Date: 20220517
  Transmission Date: 20220721
  Serious: Yes (Hospitalization)
  Sender: FDA-Public Use
  Company Number: IL-ABBVIE-21K-082-4040392-00

PATIENT
  Sex: Female

DRUGS (2)
  1. HUMIRA [Suspect]
     Active Substance: ADALIMUMAB
     Indication: Rheumatoid arthritis
     Dosage: STOPPED FOR TEETH TREATMENT
     Route: 058
     Dates: start: 20200315
  2. HUMIRA [Suspect]
     Active Substance: ADALIMUMAB
     Route: 058

REACTIONS (16)
  - Uterine inflammation [Recovered/Resolved]
  - Urinary tract infection [Recovered/Resolved]
  - Calculus urinary [Not Recovered/Not Resolved]
  - Renal disorder [Recovered/Resolved]
  - Protein total abnormal [Recovered/Resolved]
  - Immunodeficiency [Unknown]
  - Tooth disorder [Unknown]
  - Inflammation [Unknown]
  - Coronavirus infection [Recovered/Resolved]
  - Arthralgia [Recovered/Resolved]
  - Abdominal pain [Not Recovered/Not Resolved]
  - Arthralgia [Not Recovered/Not Resolved]
  - Pain in extremity [Unknown]
  - COVID-19 [Unknown]
  - Influenza [Unknown]
  - Unevaluable event [Unknown]

NARRATIVE: CASE EVENT DATE: 20210101
